FAERS Safety Report 8565797 (Version 2)
Quarter: 2012Q4

REPORT INFORMATION
  Report Type: 
  Country: GB (occurrence: GB)
  Receive Date: 20120516
  Receipt Date: 20121019
  Transmission Date: 20130627
  Serious: Yes (Other)
  Sender: FDA-Public Use
  Company Number: GB-ALLERGAN-1206533US

PATIENT
  Age: 63 Year
  Sex: Male

DRUGS (2)
  1. COMBIGAN [Suspect]
     Indication: DRUG USE FOR UNKNOWN INDICATION
     Dosage: UNK
     Route: 061
     Dates: start: 20120417, end: 20120423
  2. AZOPT [Suspect]
     Indication: DRUG USE FOR UNKNOWN INDICATION
     Dosage: UNK
     Route: 061
     Dates: start: 20120417, end: 20120423

REACTIONS (4)
  - Local reaction [Recovered/Resolved]
  - Localised oedema [Recovered/Resolved]
  - Pain [Recovered/Resolved]
  - Erythema [Recovered/Resolved]
